FAERS Safety Report 6687095-X (Version None)
Quarter: 2010Q2

REPORT INFORMATION
  Report Type: 
  Country: None (occurrence: None)
  Receive Date: 20100419
  Receipt Date: 20100407
  Transmission Date: 20101027
  Serious: Yes (Death, Other)
  Sender: FDA-Public Use
  Company Number: DE-PFIZER INC-2010007425

PATIENT
  Sex: Male
  Weight: 69 kg

DRUGS (3)
  1. CHAMPIX [Suspect]
     Indication: SMOKING CESSATION THERAPY
     Dosage: 2X 1MG, DAILY
     Route: 048
     Dates: start: 20081125
  2. FORMOTEROL [Concomitant]
     Dosage: UNK
     Route: 055
  3. SYMBICORT [Concomitant]
     Indication: CHRONIC OBSTRUCTIVE PULMONARY DISEASE
     Dosage: UNK

REACTIONS (2)
  - COMPLETED SUICIDE [None]
  - PERSONALITY DISORDER [None]
